FAERS Safety Report 8566334-4 (Version None)
Quarter: 2012Q3

REPORT INFORMATION
  Report Type: 
  Country: None (occurrence: None)
  Receive Date: 20120803
  Receipt Date: 20111013
  Transmission Date: 20120928
  Serious: No
  Sender: FDA-Public Use
  Company Number: US-ABBOTT-11P-163-0863427-00

PATIENT
  Sex: Female
  Weight: 70.37 kg

DRUGS (11)
  1. CALCIUM PLUS D3 [Concomitant]
     Indication: PRODUCT USED FOR UNKNOWN INDICATION
  2. ALUNDORNATE [Concomitant]
     Indication: PRODUCT USED FOR UNKNOWN INDICATION
  3. METOPROLOL TARTRATE [Concomitant]
     Indication: HYPERTENSION
  4. NIASPAN [Suspect]
     Indication: PRODUCT USED FOR UNKNOWN INDICATION
     Dates: start: 20110901
  5. NIASPAN [Suspect]
     Dosage: AFTER SUPPER
     Dates: start: 20111004
  6. ASPIRIN [Concomitant]
     Indication: PRODUCT USED FOR UNKNOWN INDICATION
  7. PRAVASTATIN [Concomitant]
     Indication: BLOOD TRIGLYCERIDES INCREASED
     Dates: start: 20111007
  8. MEGESTROL ACETATE [Concomitant]
     Indication: GASTRIC PH DECREASED
  9. IRON [Concomitant]
     Indication: MINERAL SUPPLEMENTATION
  10. TRAVATAN [Concomitant]
     Indication: GLAUCOMA
  11. NIASPAN [Suspect]
     Dosage: INTERRUPTED DUE TO AE
     Dates: start: 20111009, end: 20111012

REACTIONS (8)
  - OEDEMA PERIPHERAL [None]
  - SKIN BURNING SENSATION [None]
  - BURNING SENSATION [None]
  - HEADACHE [None]
  - FLUSHING [None]
  - ERYTHEMA [None]
  - PRURITUS [None]
  - DIZZINESS [None]
